FAERS Safety Report 5537488-9 (Version None)
Quarter: 2007Q4

REPORT INFORMATION
  Report Type: 
  Country: None (occurrence: None)
  Receive Date: 20071207
  Receipt Date: 20071130
  Transmission Date: 20080405
  Serious: Yes (Hospitalization)
  Sender: FDA-Public Use
  Company Number: US-MERCK-0712USA01447

PATIENT
  Age: 63 Year
  Sex: Female

DRUGS (3)
  1. HYDRODIURIL [Suspect]
     Indication: HYPERTENSION
     Route: 048
  2. DIURETIC (UNSPECIFIED) [Concomitant]
     Route: 065
  3. UNIVASC [Suspect]
     Route: 065
     Dates: end: 20071004

REACTIONS (5)
  - ABDOMINAL PAIN [None]
  - DEHYDRATION [None]
  - GASTROENTERITIS [None]
  - HYPOTENSION [None]
  - RENAL FAILURE ACUTE [None]
